FAERS Safety Report 25548895 (Version 1)
Quarter: 2025Q3

REPORT INFORMATION
  Report Type: Spontaneous
  Country: US (occurrence: None)
  Receive Date: 20250711
  Receipt Date: 20250711
  Transmission Date: 20251020
  Serious: Yes (Hospitalization)
  Sender: FDA-CTU
  Company Number: None

PATIENT
  Age: 64 Year
  Sex: Male

DRUGS (14)
  1. REPATHA [Suspect]
     Active Substance: EVOLOCUMAB
     Indication: Blood cholesterol increased
     Dosage: FREQUENCY : EVERY OTHER WEEK;?
     Route: 058
     Dates: start: 20250424
  2. GABAPENTIN [Concomitant]
     Active Substance: GABAPENTIN
  3. BREO ELLIPTA [Concomitant]
     Active Substance: FLUTICASONE FUROATE\VILANTEROL TRIFENATATE
  4. BUSPIRONE [Concomitant]
     Active Substance: BUSPIRONE HYDROCHLORIDE
  5. CARVEDILOL [Concomitant]
     Active Substance: CARVEDILOL
  6. CLOPIDOGREL [Concomitant]
     Active Substance: CLOPIDOGREL BISULFATE
  7. DULOXETINE [Concomitant]
     Active Substance: DULOXETINE
  8. GEMFIBROZIL [Concomitant]
     Active Substance: GEMFIBROZIL
  9. LEVETIRACETAM [Concomitant]
     Active Substance: LEVETIRACETAM
  10. MELOXICAM [Concomitant]
     Active Substance: MELOXICAM
  11. MONTELUKAST [Concomitant]
     Active Substance: MONTELUKAST
  12. ROSUVASTATIN [Concomitant]
     Active Substance: ROSUVASTATIN
  13. TRAZODONE [Concomitant]
     Active Substance: TRAZODONE HYDROCHLORIDE
  14. VALSARTAN [Concomitant]
     Active Substance: VALSARTAN

REACTIONS (3)
  - Blood pressure increased [None]
  - Troponin increased [None]
  - Cerebrovascular accident [None]

NARRATIVE: CASE EVENT DATE: 20250424
